FAERS Safety Report 4405326-3 (Version None)
Quarter: 2004Q3

REPORT INFORMATION
  Report Type: 
  Country: None (occurrence: None)
  Receive Date: 20040720
  Receipt Date: 20040423
  Transmission Date: 20050211
  Serious: Yes (Hospitalization)
  Sender: FDA-Public Use
  Company Number: 2001-BL-00115 (2)

PATIENT
  Age: 36 Year
  Sex: Female

DRUGS (8)
  1. VIRAMUNE [Suspect]
     Indication: HIV INFECTION
     Dosage: SEE IMAGE
     Route: 048
     Dates: start: 20001030, end: 20001113
  2. VIRAMUNE [Suspect]
     Indication: HIV INFECTION
     Dosage: SEE IMAGE
     Route: 048
     Dates: start: 20001114, end: 20010824
  3. EFAVIRENZ (ANTIVIRALS FOR SYSTEMIC USE) (KA) [Suspect]
     Indication: HIV INFECTION
     Dosage: SEE IMAGE
     Route: 048
     Dates: start: 20001030, end: 20001113
  4. EFAVIRENZ (ANTIVIRALS FOR SYSTEMIC USE) (KA) [Suspect]
     Indication: HIV INFECTION
     Dosage: SEE IMAGE
     Route: 048
     Dates: start: 20001114, end: 20010824
  5. STAVUDINE (STAVUDINE) (NR) [Suspect]
     Indication: HIV INFECTION
     Dosage: 80 MG (40MG, 1 IN 12 HR) PO
     Route: 048
     Dates: start: 20001030, end: 20010824
  6. LAMIVUDINE (LAMIVUDINE) (TA) [Concomitant]
  7. ISRADIPINE (ISRADIPINE) (NR) [Concomitant]
  8. BACTRIM (BACTRIM) (TA) [Concomitant]

REACTIONS (5)
  - BLOOD GLUCOSE INCREASED [None]
  - GLUCOSE TOLERANCE IMPAIRED [None]
  - GLUCOSE URINE PRESENT [None]
  - NEUROPATHY PERIPHERAL [None]
  - URINE KETONE BODY PRESENT [None]
